FAERS Safety Report 9452647 (Version 1)
Quarter: 2013Q3

REPORT INFORMATION
  Report Type: Report from Study
  Country: EG (occurrence: EG)
  Receive Date: 20130812
  Receipt Date: 20130812
  Transmission Date: 20140515
  Serious: Yes (Death)
  Sender: FDA-Public Use
  Company Number: EG-SANOFI-AVENTIS-2013SA079863

PATIENT
  Age: 65 Year
  Sex: Male

DRUGS (2)
  1. LANTUS [Suspect]
     Indication: TYPE 2 DIABETES MELLITUS
     Dosage: HE STARTED TO TAKE 15 IU/DAY WHICH INCREASED TO 30IU/DAY
     Route: 058
     Dates: start: 20110521
  2. LANTUS [Suspect]
     Indication: TYPE 2 DIABETES MELLITUS
     Dosage: HE STARTED TO TAKE 15 IU/DAY WHICH INCREASED TO 30IU/DAY
     Route: 058
     Dates: end: 20130412

REACTIONS (1)
  - Renal impairment [Fatal]
